FAERS Safety Report 16705008 (Version 1)
Quarter: 2019Q3

REPORT INFORMATION
  Report Type: Report from Study
  Country: US (occurrence: US)
  Receive Date: 20190815
  Receipt Date: 20190815
  Transmission Date: 20191004
  Serious: No
  Sender: FDA-Public Use
  Company Number: PHEH2019US033409

PATIENT
  Age: 52 Year
  Sex: Female

DRUGS (1)
  1. COSENTYX [Suspect]
     Active Substance: SECUKINUMAB
     Indication: ANKYLOSING SPONDYLITIS
     Dosage: 150 MG, (INJECT 150 MG (1 PEN) SUBCUTANEOUSLY AT WEEK 4, THEN 150 MG EVERY 4 WEEKS THEREAFTER)
     Route: 058

REACTIONS (1)
  - Drug ineffective [Unknown]
